FAERS Safety Report 15083209 (Version 3)
Quarter: 2018Q4

REPORT INFORMATION
  Report Type: Spontaneous
  Country: FI (occurrence: FI)
  Receive Date: 20180628
  Receipt Date: 20181011
  Transmission Date: 20190204
  Serious: Yes (Hospitalization, Other)
  Sender: FDA-Public Use
  Company Number: FI-PFIZER INC-2017091021

PATIENT
  Age: 46 Year
  Sex: Female

DRUGS (11)
  1. LEVETIRACETAM. [Suspect]
     Active Substance: LEVETIRACETAM
     Indication: EPILEPSY
     Dosage: UNK
  2. BIPERIDEN [Concomitant]
     Active Substance: BIPERIDEN
     Dosage: UNK, AS NEEDED(WHEN NECESSARY)
  3. VALPROIC ACID. [Concomitant]
     Active Substance: VALPROIC ACID
     Dosage: UNK
  4. MACROGOL [Concomitant]
     Active Substance: POLYETHYLENE GLYCOLS
     Dosage: UNK
  5. GLUCOSE [Concomitant]
     Active Substance: DEXTROSE
     Indication: BLOOD GLUCOSE DECREASED
     Dosage: UNKNOWN DOSE
  6. OLANZAPINE. [Suspect]
     Active Substance: OLANZAPINE
     Dosage: UNK
  7. LYNESTRENOL [Concomitant]
     Active Substance: LYNESTRENOL
     Dosage: UNK
  8. DEXMEDETOMIDINE. [Concomitant]
     Active Substance: DEXMEDETOMIDINE
     Dosage: UNKNOWN DOSE
  9. CLOZAPINE. [Suspect]
     Active Substance: CLOZAPINE
     Dosage: UNK
  10. TEMAZEPAM. [Concomitant]
     Active Substance: TEMAZEPAM
     Dosage: UNK, AS NEEDED(WHEN NECESSARY)
  11. DIAZEPAM. [Concomitant]
     Active Substance: DIAZEPAM
     Dosage: UNK, AS NEEDED (WHEN NECESSARY)

REACTIONS (2)
  - Hypoglycaemia [Unknown]
  - Hypothermia [Recovered/Resolved]
